FAERS Safety Report 8492098-9 (Version None)
Quarter: 2012Q2

REPORT INFORMATION
  Report Type: 
  Country: None (occurrence: None)
  Receive Date: 20120618
  Receipt Date: 20120531
  Transmission Date: 20120825
  Serious: Yes (Hospitalization)
  Sender: FDA-Public Use
  Company Number: GAM-090-12-AU

PATIENT
  Age: 39 Year
  Sex: Female

DRUGS (8)
  1. OMEPRAZOLE [Concomitant]
  2. OCTAGAM [Suspect]
     Indication: MYASTHENIA GRAVIS
     Route: 042
     Dates: start: 20120531, end: 20120531
  3. FOLIC ACID [Concomitant]
  4. MISOPROSTOL [Concomitant]
  5. PREDNISOLONE [Concomitant]
  6. DICLOFENAC SODIUM [Concomitant]
  7. PYRIDOSTGMINE [Concomitant]
  8. METHOTREXATE [Concomitant]

REACTIONS (6)
  - TREMOR [None]
  - DEVICE RELATED SEPSIS [None]
  - ENTEROBACTER INFECTION [None]
  - AGITATION [None]
  - TRANSMISSION OF AN INFECTIOUS AGENT VIA A MEDICINAL PRODUCT [None]
  - TACHYCARDIA [None]
